FAERS Safety Report 25653865 (Version 1)
Quarter: 2025Q3

REPORT INFORMATION
  Report Type: Spontaneous
  Country: AU (occurrence: AU)
  Receive Date: 20250807
  Receipt Date: 20250807
  Transmission Date: 20251021
  Serious: Yes (Other)
  Sender: AMGEN
  Company Number: AU-BEH-2025214806

PATIENT
  Age: 20 Year
  Sex: Male

DRUGS (1)
  1. TAVNEOS [Suspect]
     Active Substance: AVACOPAN
     Indication: Product used for unknown indication
     Route: 065
     Dates: start: 202408, end: 202507

REACTIONS (1)
  - Mycobacterium abscessus infection [Unknown]

NARRATIVE: CASE EVENT DATE: 20250701
